FAERS Safety Report 23456677 (Version 5)
Quarter: 2024Q2

REPORT INFORMATION
  Report Type: Spontaneous
  Country: DE (occurrence: DE)
  Receive Date: 20240130
  Receipt Date: 20240621
  Transmission Date: 20240716
  Serious: Yes (Other)
  Sender: FDA-Public Use
  Company Number: DE-LUNDBECK-DKLU3070697

PATIENT
  Age: 51 Year
  Sex: Male
  Weight: 118 kg

DRUGS (25)
  1. RABEPRAZOLE [Suspect]
     Active Substance: RABEPRAZOLE
     Indication: Gastric pH increased
     Route: 048
  2. RISPERDAL [Interacting]
     Active Substance: RISPERIDONE
     Indication: Psychotic disorder
     Dosage: MORNING 4MG, NIGHT 5MG
     Route: 065
  3. RISPERDAL [Interacting]
     Active Substance: RISPERIDONE
     Route: 065
  4. NAPROXEN [Interacting]
     Active Substance: NAPROXEN
     Indication: Arthralgia
     Dosage: 500 MG AS NECESSARY
     Route: 065
  5. CARIPRAZINE [Interacting]
     Active Substance: CARIPRAZINE
     Indication: Product used for unknown indication
     Dosage: DOSE AND FREQUENCY UNKNOWN
  6. BROMAZEPAM [Interacting]
     Active Substance: BROMAZEPAM
     Indication: Sedation
     Dosage: 3MG AS NECESSARY FOR SEDATION/ANXIETY
     Route: 065
  7. BROMAZEPAM [Interacting]
     Active Substance: BROMAZEPAM
     Indication: Anxiety
  8. MELATONIN [Interacting]
     Active Substance: MELATONIN
     Indication: Product used for unknown indication
     Dosage: DOSE AND FREQUENCY UNKNOWN
     Route: 065
  9. ABILIFY [Interacting]
     Active Substance: ARIPIPRAZOLE
     Indication: Product used for unknown indication
     Dosage: DOSE AND FREQUENCY UNKNOWN
     Route: 065
  10. RAMIPRIL [Interacting]
     Active Substance: RAMIPRIL
     Indication: Hypertension
     Dosage: DOSE AND FREQUENCY UNKNOWN
     Route: 065
  11. SEROQUEL [Interacting]
     Active Substance: QUETIAPINE FUMARATE
     Indication: Insomnia
     Dosage: 25-50MG IF NECESSARY
     Route: 065
  12. SEROQUEL [Interacting]
     Active Substance: QUETIAPINE FUMARATE
     Indication: Sedation
     Route: 065
  13. PROPRANOLOL [Interacting]
     Active Substance: PROPRANOLOL HYDROCHLORIDE
     Indication: Tremor
     Dosage: DOSE AND FREQUENCY UNKNOWN
     Route: 065
  14. CLOZAPINE [Interacting]
     Active Substance: CLOZAPINE
     Indication: Product used for unknown indication
     Dosage: DOSE AND FREQUENCY UNKNOWN
  15. NEBIVOLOL [Interacting]
     Active Substance: NEBIVOLOL
  16. SILDENAFIL [Interacting]
     Active Substance: SILDENAFIL
     Indication: Product used for unknown indication
     Dosage: DOSE AND FREQUENCY UNKNOWN
  17. ZYPREXA [Interacting]
     Active Substance: OLANZAPINE
     Indication: Product used for unknown indication
     Dosage: DOSE AND FREQUENCY UNKNOWN
  18. TAVOR (LORAZEPAM) [Interacting]
     Active Substance: LORAZEPAM
     Indication: Sedation
     Dosage: 1MG IF NECESSARY
  19. TAVOR (LORAZEPAM) [Interacting]
     Active Substance: LORAZEPAM
     Indication: Anxiety
  20. CANDESARTAN [Interacting]
     Active Substance: CANDESARTAN
     Indication: Hypertension
     Dosage: MORNING 8MG, AFTERNOON 4MG
  21. ZELDOX [Interacting]
     Active Substance: ZIPRASIDONE
     Indication: Product used for unknown indication
     Dosage: DOSE AND FREQUENCY UNKNOWN
  22. FLUPENTIXOL DIHYDROCHLORIDE [Interacting]
     Active Substance: FLUPENTIXOL DIHYDROCHLORIDE
     Indication: Psychotic disorder
     Dosage: MORNING: 5MG EVENING: 6 MG NIGHT: 2MG
  23. CHLORPROTHIXENE [Interacting]
     Active Substance: CHLORPROTHIXENE
     Indication: Insomnia
  24. ISOPROMETHAZINE HYDROCHLORIDE [Interacting]
     Active Substance: ISOPROMETHAZINE HYDROCHLORIDE
     Indication: Product used for unknown indication
  25. ISOPROMETHAZINE HYDROCHLORIDE [Interacting]
     Active Substance: ISOPROMETHAZINE HYDROCHLORIDE

REACTIONS (8)
  - Suicidal ideation [Unknown]
  - Drug interaction [Unknown]
  - Brain fog [Unknown]
  - Blood pressure increased [Unknown]
  - Dizziness [Unknown]
  - Somnolence [Unknown]
  - Flatulence [Unknown]
  - Parkinsonism [Unknown]
